FAERS Safety Report 7823042-2 (Version None)
Quarter: 2011Q4

REPORT INFORMATION
  Report Type: 
  Country: None (occurrence: None)
  Receive Date: 20111018
  Receipt Date: 20101230
  Transmission Date: 20120403
  Serious: No
  Sender: FDA-Public Use
  Company Number: US-ASTRAZENECA-2009SE13047

PATIENT
  Age: 28804 Day
  Sex: Female
  Weight: 67.1 kg

DRUGS (18)
  1. SYMBICORT [Suspect]
     Dosage: 160/4.5 MCG, UNKNOWN FREQUENCY
     Route: 055
     Dates: start: 20090601
  2. IPRATROPRIUM BROMIDE [Concomitant]
     Indication: CHRONIC OBSTRUCTIVE PULMONARY DISEASE
     Dosage: ONCE IN AM
     Route: 055
     Dates: start: 20060101
  3. SYMBICORT [Suspect]
     Dosage: 80/4.5 2 PUFFS TWO TIMES A DAY
     Route: 055
     Dates: start: 20090813, end: 20090826
  4. SYMBICORT [Suspect]
     Dosage: 80/4.5 MCG, UNKNOWN FREQUENCY
     Route: 055
  5. ASPIRIN [Concomitant]
  6. ALBUTEROL INHALER [Concomitant]
     Indication: CHRONIC OBSTRUCTIVE PULMONARY DISEASE
     Dosage: BID PRN
     Route: 055
     Dates: start: 20060101
  7. SYMBICORT [Suspect]
     Indication: ASTHMA
     Route: 055
     Dates: start: 20090201
  8. SYMBICORT [Suspect]
     Dosage: 160/4.5 1 PUFFS TWO TIMES A DAY
     Route: 055
     Dates: start: 20090910
  9. CALCIUM CARBONATE [Concomitant]
  10. SYMBICORT [Suspect]
     Dosage: 160/4.5 1 PUFFS TWO TIMES A DAY
     Route: 055
     Dates: start: 20090910
  11. COMBIVENT [Concomitant]
     Indication: CHRONIC OBSTRUCTIVE PULMONARY DISEASE
     Dosage: PRN
     Route: 055
     Dates: start: 19990101
  12. ALBUTEROL SULFATE AUTOHALER [Concomitant]
     Indication: CHRONIC OBSTRUCTIVE PULMONARY DISEASE
     Dosage: ONCE IN AM
     Route: 055
     Dates: start: 20060101
  13. SYMBICORT [Suspect]
     Dosage: 80/4.5 2 PUFFS TWO TIMES A DAY
     Route: 055
     Dates: start: 20090813, end: 20090826
  14. SYMBICORT [Suspect]
     Indication: CHRONIC OBSTRUCTIVE PULMONARY DISEASE
     Route: 055
     Dates: start: 20090201
  15. SYMBICORT [Suspect]
     Dosage: 160/4.5 MCG, UNKNOWN FREQUENCY
     Route: 055
     Dates: start: 20090601
  16. SYMBICORT [Suspect]
     Dosage: 160/4.5  2 PUFFS TWO TIMES A DAY
     Route: 055
     Dates: start: 20090827, end: 20090910
  17. SYMBICORT [Suspect]
     Dosage: 160/4.5  2 PUFFS TWO TIMES A DAY
     Route: 055
     Dates: start: 20090827, end: 20090910
  18. SYMBICORT [Suspect]
     Dosage: 80/4.5 MCG, UNKNOWN FREQUENCY
     Route: 055

REACTIONS (9)
  - CHEST DISCOMFORT [None]
  - FEELING ABNORMAL [None]
  - FATIGUE [None]
  - INCREASED UPPER AIRWAY SECRETION [None]
  - PNEUMONIA [None]
  - DYSPNOEA EXERTIONAL [None]
  - TREMOR [None]
  - DYSPHONIA [None]
  - DRUG INTOLERANCE [None]
